FAERS Safety Report 22968768 (Version 2)
Quarter: 2024Q1

REPORT INFORMATION
  Report Type: Spontaneous
  Country: US (occurrence: US)
  Receive Date: 20230921
  Receipt Date: 20240101
  Transmission Date: 20240410
  Serious: No
  Sender: FDA-Public Use
  Company Number: US-PURDUE-USA-2023-0303875

PATIENT
  Sex: Male
  Weight: 157 kg

DRUGS (8)
  1. ACETAMINOPHEN\OXYCODONE HYDROCHLORIDE [Suspect]
     Active Substance: ACETAMINOPHEN\OXYCODONE HYDROCHLORIDE
     Indication: Pain
     Dosage: UNKNOWN
     Route: 048
  2. PERCOCET [Suspect]
     Active Substance: ACETAMINOPHEN\OXYCODONE HYDROCHLORIDE
     Indication: Back pain
     Dosage: 4 DAYS
     Route: 065
  3. BYSTOLIC [Concomitant]
     Active Substance: NEBIVOLOL HYDROCHLORIDE
     Indication: Hypertension
     Dosage: 5 MILLIGRAM(10 YEARS)
     Route: 065
  4. CLONIDINE [Concomitant]
     Active Substance: CLONIDINE
     Indication: Hypertension
     Dosage: 0.1 MILLIGRAM(1 YEAR)
     Route: 065
  5. LOSARTAN [Concomitant]
     Active Substance: LOSARTAN
     Indication: Hypertension
     Dosage: 50 MILLIGRAM( 6 MONTHS)
     Route: 065
  6. MORPHINE SULFATE [Concomitant]
     Active Substance: MORPHINE SULFATE
     Indication: Pain
     Dosage: 15 MILLIGRAM( 2YEARS)
     Route: 065
  7. DULOXETINE [Concomitant]
     Active Substance: DULOXETINE
     Indication: Anxiety
     Dosage: 20 MILLIGRAM (6 MONTHS)
     Route: 065
  8. DULOXETINE [Concomitant]
     Active Substance: DULOXETINE
     Indication: Pain

REACTIONS (11)
  - Migraine [Unknown]
  - Headache [Unknown]
  - Myalgia [Unknown]
  - Fatigue [Unknown]
  - Nausea [Unknown]
  - Dizziness [Unknown]
  - Vomiting [Unknown]
  - Abdominal discomfort [Unknown]
  - Drug ineffective [Unknown]
  - Unevaluable event [Unknown]
  - Product complaint [Unknown]
